FAERS Safety Report 18527632 (Version 1)
Quarter: 2020Q4

REPORT INFORMATION
  Report Type: Spontaneous
  Country: US (occurrence: US)
  Receive Date: 20201120
  Receipt Date: 20201120
  Transmission Date: 20210114
  Serious: No
  Sender: FDA-Public Use
  Company Number: US-GW PHARMA-202011USGW03804

PATIENT

DRUGS (1)
  1. EPIDIOLEX [Suspect]
     Active Substance: CANNABIDIOL
     Indication: LENNOX-GASTAUT SYNDROME
     Dosage: 170 MILLIGRAM, BID (DISCONTINUED AFTER 3 DAYS OF STARTING/STOPPED AFTER 4 DAYS)
     Route: 048
     Dates: start: 20201007, end: 202010

REACTIONS (3)
  - Anxiety [Recovering/Resolving]
  - Condition aggravated [Recovering/Resolving]
  - Abnormal behaviour [Recovering/Resolving]

NARRATIVE: CASE EVENT DATE: 202010
